FAERS Safety Report 7372378-0 (Version None)
Quarter: 2011Q1

REPORT INFORMATION
  Report Type: 
  Country: None (occurrence: None)
  Receive Date: 20110324
  Receipt Date: 20110202
  Transmission Date: 20110831
  Serious: Yes (Hospitalization)
  Sender: FDA-Public Use
  Company Number: US-JNJFOC-20110309033

PATIENT
  Age: 48 Year
  Sex: Male

DRUGS (10)
  1. FAMOTIDINE [Suspect]
     Indication: PRODUCT USED FOR UNKNOWN INDICATION
     Route: 048
  2. FAMOTIDINE [Suspect]
     Route: 048
  3. PLAVIX [Concomitant]
  4. PLAVIX [Concomitant]
  5. NICOTINE [Concomitant]
  6. GABAPENTIN [Concomitant]
  7. MORPHINE [Concomitant]
  8. OXYCONTIN [Concomitant]
  9. AMITRIPTYLINE [Concomitant]
  10. HEPARIN [Suspect]
     Indication: PERIPHERAL EMBOLISM

REACTIONS (1)
  - HEPARIN-INDUCED THROMBOCYTOPENIA [None]
